FAERS Safety Report 15986805 (Version 2)
Quarter: 2019Q3

REPORT INFORMATION
  Report Type: Spontaneous
  Country: US (occurrence: US)
  Receive Date: 20190220
  Receipt Date: 20190725
  Transmission Date: 20191004
  Serious: No
  Sender: FDA-Public Use
  Company Number: US-BRISTOL-MYERS SQUIBB COMPANY-BMS-2019-017742

PATIENT
  Sex: Male

DRUGS (1)
  1. OPDIVO [Suspect]
     Active Substance: NIVOLUMAB
     Indication: CHOLANGIOCARCINOMA
     Dosage: UNAVAILABLE
     Route: 065

REACTIONS (7)
  - Confusional state [Unknown]
  - Influenza like illness [Unknown]
  - Pyrexia [Unknown]
  - Dizziness [Unknown]
  - Chills [Unknown]
  - Intentional product use issue [Unknown]
  - Headache [Unknown]
